FAERS Safety Report 8133757-7 (Version None)
Quarter: 2012Q1

REPORT INFORMATION
  Report Type: 
  Country: None (occurrence: None)
  Receive Date: 20120213
  Receipt Date: 20120213
  Transmission Date: 20120608
  Serious: Yes (Life-Threatening, Hospitalization, Disabling, Other)
  Sender: FDA-Public Use
  Company Number: None

PATIENT
  Age: 62 Year
  Sex: Female
  Weight: 89.811 kg

DRUGS (1)
  1. LIPITOR [Suspect]
     Indication: GASTRIC ULCER
     Route: 048
     Dates: start: 20110601, end: 20120208

REACTIONS (2)
  - MUSCULOSKELETAL STIFFNESS [None]
  - ULCER [None]
